FAERS Safety Report 24822323 (Version 5)
Quarter: 2025Q1

REPORT INFORMATION
  Report Type: Report from Study
  Country: US (occurrence: US)
  Receive Date: 20250108
  Receipt Date: 20250304
  Transmission Date: 20250409
  Serious: Yes (Other)
  Sender: ABBVIE
  Company Number: US-ABBVIE-6064493

PATIENT
  Age: 67 Year
  Sex: Female
  Weight: 92 kg

DRUGS (10)
  1. HUMIRA [Suspect]
     Active Substance: ADALIMUMAB
     Indication: Ankylosing spondylitis
     Route: 058
     Dates: start: 202404
  2. HUMIRA [Suspect]
     Active Substance: ADALIMUMAB
     Dosage: FORM STRENGTH: 40 MILLIGRAM
     Route: 058
     Dates: start: 202404, end: 202408
  3. HUMIRA [Suspect]
     Active Substance: ADALIMUMAB
     Dosage: FORM STRENGTH: 40 MILLIGRAM
     Route: 058
     Dates: start: 202411
  4. RESTASIS [Suspect]
     Active Substance: CYCLOSPORINE
     Indication: Dry eye
     Route: 065
  5. Pregabalin sz [Concomitant]
     Indication: Ear pain
  6. LOSARTAN [Concomitant]
     Active Substance: LOSARTAN
     Indication: Blood pressure abnormal
  7. ATORVASTATIN [Concomitant]
     Active Substance: ATORVASTATIN
     Indication: Blood cholesterol abnormal
  8. CALCITRIOL [Concomitant]
     Active Substance: CALCITRIOL
     Indication: Mineral supplementation
  9. SYNTHROID [Concomitant]
     Active Substance: LEVOTHYROXINE SODIUM
     Indication: Thyroid disorder
  10. PREGABALIN [Concomitant]
     Active Substance: PREGABALIN
     Indication: Pain in extremity
     Dates: start: 202408

REACTIONS (18)
  - Intervertebral disc protrusion [Recovering/Resolving]
  - Arthralgia [Unknown]
  - Peripheral venous disease [Unknown]
  - Haematoma [Not Recovered/Not Resolved]
  - Peripheral swelling [Recovering/Resolving]
  - Spinal fusion surgery [Recovering/Resolving]
  - Skin tightness [Unknown]
  - Balance disorder [Not Recovered/Not Resolved]
  - Device issue [Unknown]
  - Burning sensation [Not Recovered/Not Resolved]
  - Nerve injury [Unknown]
  - Angiopathy [Unknown]
  - Hypoaesthesia [Not Recovered/Not Resolved]
  - Arthrodesis [Recovering/Resolving]
  - Lordosis [Recovering/Resolving]
  - Spondylitis [Recovering/Resolving]
  - Post procedural complication [Unknown]
  - Headache [Recovered/Resolved]

NARRATIVE: CASE EVENT DATE: 20210901
